FAERS Safety Report 13040276 (Version 1)
Quarter: 2016Q4

REPORT INFORMATION
  Report Type: Report from Study
  Country: ZA (occurrence: ZA)
  Receive Date: 20161219
  Receipt Date: 20161219
  Transmission Date: 20170207
  Serious: Yes (Hospitalization)
  Sender: FDA-Public Use
  Company Number: ZA-NOVOPROD-498964

PATIENT
  Age: 48 Year
  Sex: Female
  Weight: 124 kg

DRUGS (2)
  1. METFORMIN [Concomitant]
     Active Substance: METFORMIN HYDROCHLORIDE
     Indication: TYPE 2 DIABETES MELLITUS
     Dosage: 1000 MG, QD
     Route: 048
     Dates: start: 2010
  2. INSULIN DEGLUDEC LIRAGLUTIDE PDS290 [Suspect]
     Active Substance: INSULIN DEGLUDEC\LIRAGLUTIDE
     Indication: TYPE 2 DIABETES MELLITUS
     Dosage: 32, DOSE STEP, QD
     Route: 058
     Dates: start: 20160420

REACTIONS (8)
  - Nausea [Recovered/Resolved]
  - Vomiting [Recovered/Resolved]
  - Diarrhoea [Recovered/Resolved]
  - Abdominal pain [Recovered/Resolved]
  - Irritable bowel syndrome [Recovered/Resolved with Sequelae]
  - Gastrooesophageal reflux disease [Recovering/Resolving]
  - Gastroduodenitis [Recovered/Resolved]
  - Hepatic steatosis [None]

NARRATIVE: CASE EVENT DATE: 20160423
